FAERS Safety Report 15867330 (Version 1)
Quarter: 2019Q1

REPORT INFORMATION
  Report Type: Spontaneous
  Country: FR (occurrence: FR)
  Receive Date: 20190125
  Receipt Date: 20190125
  Transmission Date: 20190417
  Serious: Yes (Hospitalization)
  Sender: FDA-Public Use
  Company Number: FR-JNJFOC-20190120996

PATIENT
  Age: 8 Year
  Sex: Female
  Weight: 47 kg

DRUGS (1)
  1. KETOCONAZOLE. [Suspect]
     Active Substance: KETOCONAZOLE
     Indication: FUNGAL INFECTION
     Route: 048
     Dates: start: 20181109, end: 20181115

REACTIONS (6)
  - Head discomfort [Recovering/Resolving]
  - Product dispensing error [Recovered/Resolved]
  - Headache [Recovering/Resolving]
  - Product prescribing error [Recovered/Resolved]
  - Tinnitus [Not Recovered/Not Resolved]
  - Diplopia [Recovering/Resolving]

NARRATIVE: CASE EVENT DATE: 20181109
